FAERS Safety Report 23230061 (Version 1)
Quarter: 2023Q4

REPORT INFORMATION
  Report Type: Spontaneous
  Country: NL (occurrence: NL)
  Receive Date: 20231127
  Receipt Date: 20231127
  Transmission Date: 20240110
  Serious: Yes (Hospitalization)
  Sender: FDA-Public Use
  Company Number: NL-ABBVIE-5508986

PATIENT
  Age: 83 Year
  Sex: Male

DRUGS (5)
  1. CARBIDOPA\LEVODOPA [Suspect]
     Active Substance: CARBIDOPA\LEVODOPA
     Indication: Parkinson^s disease
     Route: 050
  2. CARBIDOPA\LEVODOPA [Suspect]
     Active Substance: CARBIDOPA\LEVODOPA
  3. RIVASTIGMINE [Concomitant]
     Active Substance: RIVASTIGMINE
     Indication: Product used for unknown indication
  4. CLOZAPINE [Concomitant]
     Active Substance: CLOZAPINE
     Indication: Product used for unknown indication
  5. CARBIDOPA\ENTACAPONE\LEVODOPA [Suspect]
     Active Substance: CARBIDOPA\ENTACAPONE\LEVODOPA
     Indication: Parkinson^s disease
     Dosage: CONTINUOUS DOSE MAX.: 5.4 ML/H
     Route: 065

REACTIONS (18)
  - Cognitive disorder [Unknown]
  - Abnormal behaviour [Unknown]
  - Disorientation [Unknown]
  - Unevaluable event [Unknown]
  - On and off phenomenon [Unknown]
  - Hallucination [Unknown]
  - Decreased appetite [Unknown]
  - Choking [Unknown]
  - Hyporesponsive to stimuli [Unknown]
  - Incoherent [Unknown]
  - Disturbance in attention [Unknown]
  - Memory impairment [Unknown]
  - Communication disorder [Unknown]
  - Loss of personal independence in daily activities [Unknown]
  - Loss of personal independence in daily activities [Unknown]
  - Delusion [Unknown]
  - Fatigue [Unknown]
  - Emotional disorder [Unknown]

NARRATIVE: CASE EVENT DATE: 20231001
